FAERS Safety Report 11905204 (Version 1)
Quarter: 2016Q1

REPORT INFORMATION
  Report Type: Spontaneous
  Country: US (occurrence: US)
  Receive Date: 20160109
  Receipt Date: 20160109
  Transmission Date: 20160526
  Serious: No
  Sender: FDA-Public Use
  Company Number: US-JNJFOC-20151202384

PATIENT
  Sex: Female
  Weight: 56.7 kg

DRUGS (15)
  1. RAPAMUNE [Concomitant]
     Active Substance: SIROLIMUS
     Indication: SEIZURE
     Route: 065
  2. RISPERDAL M-TAB [Suspect]
     Active Substance: RISPERIDONE
     Indication: EMOTIONAL DISORDER
     Dosage: AS NECESSARY
     Route: 048
  3. RISPERDAL [Suspect]
     Active Substance: RISPERIDONE
     Indication: ABNORMAL BEHAVIOUR
     Dosage: 0.5 IN THE MORNING AND AFTERNOON AND 2*0.5 MG TABLETS AT NIGHT.
     Route: 048
     Dates: start: 2015
  4. METFORMIN [Concomitant]
     Active Substance: METFORMIN HYDROCHLORIDE
     Indication: BLOOD GLUCOSE FLUCTUATION
     Route: 065
  5. RISPERIDONE. [Suspect]
     Active Substance: RISPERIDONE
     Indication: ABNORMAL BEHAVIOUR
     Route: 048
  6. RISPERDAL [Suspect]
     Active Substance: RISPERIDONE
     Indication: ABNORMAL BEHAVIOUR
     Route: 048
     Dates: end: 2015
  7. LEVOCARNITINE. [Concomitant]
     Active Substance: LEVOCARNITINE
     Indication: NUTRITIONAL SUPPLEMENTATION
     Dosage: DOSE: 100MG/ML; STRENGTH: 6 ML
     Route: 065
  8. ESCITALOPRAM [Concomitant]
     Active Substance: ESCITALOPRAM OXALATE
     Indication: ABNORMAL BEHAVIOUR
     Route: 065
  9. MELATONIN [Concomitant]
     Active Substance: MELATONIN
     Indication: SLEEP DISORDER
     Route: 065
  10. RISPERIDONE. [Suspect]
     Active Substance: RISPERIDONE
     Indication: ABNORMAL BEHAVIOUR
     Route: 048
  11. RISPERDAL [Suspect]
     Active Substance: RISPERIDONE
     Indication: ABNORMAL BEHAVIOUR
     Route: 048
  12. MIRTAZAPINE. [Concomitant]
     Active Substance: MIRTAZAPINE
     Indication: SLEEP DISORDER
     Route: 065
  13. FERROUS SULFATE [Concomitant]
     Active Substance: FERROUS SULFATE\FERROUS SULFATE, DRIED
     Indication: MINERAL SUPPLEMENTATION
     Route: 065
  14. DEPAKOTE [Concomitant]
     Active Substance: DIVALPROEX SODIUM
     Indication: SEIZURE
     Route: 065
  15. FELBAMATE. [Concomitant]
     Active Substance: FELBAMATE
     Indication: SEIZURE
     Route: 065

REACTIONS (6)
  - Expired product administered [Not Recovered/Not Resolved]
  - Off label use [Unknown]
  - Abnormal behaviour [Recovered/Resolved]
  - Drug dose omission [Unknown]
  - Emotional disorder [Not Recovered/Not Resolved]
  - Drug administration error [Unknown]

NARRATIVE: CASE EVENT DATE: 2015
